FAERS Safety Report 13373673 (Version 1)
Quarter: 2017Q1

REPORT INFORMATION
  Report Type: Spontaneous
  Country: US (occurrence: US)
  Receive Date: 20170327
  Receipt Date: 20170327
  Transmission Date: 20170429
  Serious: No
  Sender: FDA-Public Use
  Company Number: US-PFIZER INC-2016535792

PATIENT
  Age: 71 Year
  Sex: Female

DRUGS (14)
  1. ZOLPIDEM [Concomitant]
     Active Substance: ZOLPIDEM\ZOLPIDEM TARTRATE
     Dosage: 10 MG, AS NEEDED [AT BEDTIME]
     Route: 048
  2. ZOLEDRONIC ACID [Concomitant]
     Active Substance: ZOLEDRONIC ACID
     Dosage: UNK
     Route: 042
  3. COMPAZINE [Concomitant]
     Active Substance: PROCHLORPERAZINE MALEATE
     Indication: NAUSEA
     Dosage: 10 MG, AS NEEDED [TAKE 1 TAB BY MOUTH FOUR TIMES]
     Route: 048
  4. VITAMIN B-6 [Concomitant]
     Active Substance: PYRIDOXINE
     Dosage: 300 MG, 1X/DAY [TAKING 2 TABS WITH LUNCH, 1 TAB WITH DINNER]
     Route: 048
  5. MAITAKE [Concomitant]
     Active Substance: MAITAKE
     Indication: NATURAL KILLER CELL COUNT INCREASED
     Dosage: 1 DF, 2X/DAY [WITH OR WITHOUT FOOD ]
  6. OMEGA 3 6 9 COMPLEX [Concomitant]
     Dosage: 2 DF, UNK
     Route: 048
  7. COMPAZINE [Concomitant]
     Active Substance: PROCHLORPERAZINE MALEATE
     Indication: VOMITING
  8. SYNTHROID [Concomitant]
     Active Substance: LEVOTHYROXINE SODIUM
     Dosage: 88 UG, 1X/DAY
     Route: 048
  9. ASTRAGALUS GUMMIFER [Concomitant]
     Active Substance: UNSPECIFIED INGREDIENT
     Dosage: 1 DF, 2X/DAY
  10. IBRANCE [Suspect]
     Active Substance: PALBOCICLIB
     Indication: BREAST CANCER METASTATIC
     Dosage: 100 MG, CYCLIC[QD X21D]
     Route: 048
     Dates: start: 20161103
  11. ZANTAC [Concomitant]
     Active Substance: RANITIDINE HYDROCHLORIDE
     Dosage: 150 MG, 2X/DAY
     Route: 048
  12. PRED FORTE [Concomitant]
     Active Substance: PREDNISOLONE ACETATE
     Dosage: 1 GTT, 1X/DAY [PLACE 1 DROP IN THE EYE ONCE PER DAY]
     Route: 047
  13. VITAMIN D [Concomitant]
     Active Substance: CHOLECALCIFEROL
     Dosage: 2000 IU, 1X/DAY
     Route: 048
  14. LIPOSOMAL DOXORUBICIN HCL [Concomitant]
     Active Substance: DOXORUBICIN HYDROCHLORIDE
     Dosage: UNK
     Route: 042

REACTIONS (1)
  - Neoplasm progression [Unknown]
